FAERS Safety Report 5960115-3 (Version None)
Quarter: 2008Q4

REPORT INFORMATION
  Report Type: 
  Country: None (occurrence: None)
  Receive Date: 20081118
  Receipt Date: 20081118
  Transmission Date: 20090506
  Serious: Yes (Life-Threatening, Other)
  Sender: FDA-Public Use
  Company Number: None

PATIENT
  Age: 56 Year
  Sex: Female
  Weight: 131.0895 kg

DRUGS (1)
  1. METFORMIN HCL ER 500MG SUN PHARMACUTICAL [Suspect]
     Indication: BLOOD GLUCOSE INCREASED
     Dosage: 500MG  TWIC A DAY PO
     Route: 048
     Dates: start: 20081014, end: 20081015

REACTIONS (7)
  - DIARRHOEA [None]
  - FEAR [None]
  - HEADACHE [None]
  - HEART RATE INCREASED [None]
  - MYOCARDIAL INFARCTION [None]
  - RASH [None]
  - SCAR [None]
